FAERS Safety Report 7444992-5 (Version None)
Quarter: 2011Q2

REPORT INFORMATION
  Report Type: 
  Country: None (occurrence: None)
  Receive Date: 20110427
  Receipt Date: 20110427
  Transmission Date: 20111010
  Serious: Yes (Other)
  Sender: FDA-Public Use
  Company Number: None

PATIENT
  Age: 28 Year
  Sex: Male
  Weight: 86.1834 kg

DRUGS (2)
  1. ZOLOFT [Suspect]
     Indication: BIPOLAR DISORDER
     Dosage: 100MG ONCE A DAY PO
     Route: 048
     Dates: start: 20101115, end: 20110215
  2. ZOLOFT [Suspect]
     Indication: ANXIETY
     Dosage: 100MG ONCE A DAY PO
     Route: 048
     Dates: start: 20101115, end: 20110215

REACTIONS (12)
  - SUICIDE ATTEMPT [None]
  - LACERATION [None]
  - SCREAMING [None]
  - FORMICATION [None]
  - ECONOMIC PROBLEM [None]
  - INTENTIONAL SELF-INJURY [None]
  - LOSS OF EMPLOYMENT [None]
  - LOSS OF CONSCIOUSNESS [None]
  - MUSCLE TWITCHING [None]
  - PARAESTHESIA [None]
  - CONVULSION [None]
  - ABNORMAL BEHAVIOUR [None]
